FAERS Safety Report 23265845 (Version 1)
Quarter: 2023Q4

REPORT INFORMATION
  Report Type: Report from Study
  Country: US (occurrence: US)
  Receive Date: 20231206
  Receipt Date: 20231206
  Transmission Date: 20240110
  Serious: Yes (Life-Threatening, Hospitalization)
  Sender: FDA-Public Use
  Company Number: US-BRISTOL-MYERS SQUIBB COMPANY-2023-153591

PATIENT
  Age: 54 Year
  Sex: Female
  Weight: 86.18 kg

DRUGS (7)
  1. ZEPOSIA [Suspect]
     Active Substance: OZANIMOD HYDROCHLORIDE
     Indication: Multiple sclerosis
     Dosage: STARTER PACK
     Route: 048
     Dates: start: 20231019
  2. ZEPOSIA [Suspect]
     Active Substance: OZANIMOD HYDROCHLORIDE
     Dosage: SECOND TITRATION UP
     Route: 048
     Dates: start: 20231023
  3. GABAPENTIN [Concomitant]
     Active Substance: GABAPENTIN
     Indication: Multiple sclerosis
     Dosage: AT BEDTIME
     Route: 048
     Dates: start: 20230213
  4. PROBIOTICS NOS [Concomitant]
     Active Substance: PROBIOTICS NOS
     Indication: Product used for unknown indication
  5. CAYENNE PEPPER [Concomitant]
     Active Substance: CAPSICUM
     Indication: Product used for unknown indication
     Route: 048
  6. NITROFURANTOIN [Concomitant]
     Active Substance: NITROFURANTOIN
     Indication: Urinary tract infection
     Dosage: DAILY
     Route: 048
  7. LINACLOTIDE [Concomitant]
     Active Substance: LINACLOTIDE
     Indication: Product used for unknown indication
     Dosage: ONCE DAILY
     Route: 048

REACTIONS (7)
  - Abdominal pain upper [Recovered/Resolved]
  - Cardiac discomfort [Recovered/Resolved]
  - Feeling abnormal [Recovered/Resolved]
  - Chest pain [Recovered/Resolved]
  - COVID-19 [Recovered/Resolved]
  - Diarrhoea [Recovered/Resolved]
  - Headache [Recovered/Resolved]

NARRATIVE: CASE EVENT DATE: 20231022
